FAERS Safety Report 20769596 (Version 3)
Quarter: 2022Q3

REPORT INFORMATION
  Report Type: Report from Study
  Country: US (occurrence: US)
  Receive Date: 20220429
  Receipt Date: 20220721
  Transmission Date: 20221027
  Serious: Yes (Hospitalization, Other)
  Sender: FDA-Public Use
  Company Number: US-NOVARTISPH-NVSC2022US096541

PATIENT
  Sex: Female

DRUGS (1)
  1. ENTRESTO [Suspect]
     Active Substance: SACUBITRIL\VALSARTAN
     Indication: Cardiac failure
     Dosage: 1 DOSAGE FORM, BID (97/103 MG)
     Route: 048
     Dates: start: 2020

REACTIONS (7)
  - Dyspnoea [Unknown]
  - Asthma [Recovering/Resolving]
  - Abdominal distension [Recovering/Resolving]
  - Hypervolaemia [Recovered/Resolved]
  - Blood pressure decreased [Unknown]
  - Gait disturbance [Unknown]
  - Fluid retention [Unknown]

NARRATIVE: CASE EVENT DATE: 20210101
